FAERS Safety Report 12081786 (Version 6)
Quarter: 2016Q2

REPORT INFORMATION
  Report Type: Report from Study
  Country: CO (occurrence: CO)
  Receive Date: 20160216
  Receipt Date: 20160429
  Transmission Date: 20160815
  Serious: Yes (Death, Hospitalization, Other)
  Sender: FDA-Public Use
  Company Number: PHHY2016CO019992

PATIENT
  Age: 61 Year
  Sex: Male
  Weight: 68 kg

DRUGS (2)
  1. EXJADE [Suspect]
     Active Substance: DEFERASIROX
     Indication: MYELODYSPLASTIC SYNDROME
     Dosage: 20 MG/KG, QD (500 MG EVERY 8 HOURS, TID)
     Route: 048
     Dates: start: 20150915, end: 20160125
  2. MORPHINE [Concomitant]
     Active Substance: MORPHINE
     Indication: PRODUCT USED FOR UNKNOWN INDICATION
     Dosage: 10 DRP, QD
     Route: 048

REACTIONS (12)
  - Device related infection [Unknown]
  - Catheter site inflammation [Unknown]
  - Bacteraemia [Unknown]
  - Pyrexia [Unknown]
  - Dyspnoea [Unknown]
  - Platelet count decreased [Unknown]
  - Red blood cell count decreased [Unknown]
  - Gangrene [Unknown]
  - Cardio-respiratory arrest [Fatal]
  - Catheter site pain [Unknown]
  - Depression [Unknown]
  - Chills [Unknown]

NARRATIVE: CASE EVENT DATE: 20160210
